FAERS Safety Report 7780650-5 (Version None)
Quarter: 2011Q3

REPORT INFORMATION
  Report Type: 
  Country: None (occurrence: None)
  Receive Date: 20110927
  Receipt Date: 20110211
  Transmission Date: 20111222
  Serious: No
  Sender: FDA-Public Use
  Company Number: US-BRISTOL-MYERS SQUIBB COMPANY-15545791

PATIENT
  Age: 73 Year
  Sex: Female

DRUGS (2)
  1. ZOCOR [Concomitant]
  2. AVAPRO [Suspect]
     Indication: HYPERTENSION

REACTIONS (2)
  - DRUG INEFFECTIVE [None]
  - COUGH [None]
